FAERS Safety Report 17895023 (Version 1)
Quarter: 2020Q2

REPORT INFORMATION
  Report Type: Spontaneous
  Country: US (occurrence: US)
  Receive Date: 20200615
  Receipt Date: 20200615
  Transmission Date: 20200714
  Serious: No
  Sender: FDA-Public Use
  Company Number: US-PFIZER INC-2020229495

PATIENT
  Sex: Male

DRUGS (1)
  1. PREGABALIN. [Suspect]
     Active Substance: PREGABALIN
     Dosage: 4 DF, DAILY (1 LYRICA IN THE MORNING AND 1 AT NIGHT AND 2 SUBSTITUTES)

REACTIONS (1)
  - Therapeutic product effect incomplete [Unknown]
